FAERS Safety Report 8393842-1 (Version None)
Quarter: 2012Q2

REPORT INFORMATION
  Report Type: 
  Country: None (occurrence: None)
  Receive Date: 20120530
  Receipt Date: 20120524
  Transmission Date: 20120825
  Serious: No
  Sender: FDA-Public Use
  Company Number: US-PFIZER INC-2012126606

PATIENT
  Sex: Female
  Weight: 72.562 kg

DRUGS (4)
  1. TRAMADOL [Concomitant]
     Dosage: UNK
  2. ZYRTEC [Concomitant]
     Dosage: UNK
  3. METHOCARBAMOL [Concomitant]
     Dosage: UNK
  4. ALAVERT [Suspect]
     Dosage: UNK, EVERY 4 HRS
     Route: 048
     Dates: end: 20110101

REACTIONS (1)
  - AMPHETAMINES POSITIVE [None]
